FAERS Safety Report 7756533-3 (Version None)
Quarter: 2011Q3

REPORT INFORMATION
  Report Type: 
  Country: None (occurrence: None)
  Receive Date: 20110916
  Receipt Date: 20110908
  Transmission Date: 20111222
  Serious: Yes (Hospitalization, Other)
  Sender: FDA-Public Use
  Company Number: CHPA2011US12285

PATIENT
  Age: 64 Year
  Sex: Female

DRUGS (2)
  1. BENEFIBER W/ WHEAT DEXTRIN [Suspect]
     Indication: BOWEL MOVEMENT IRREGULARITY
     Dosage: UNK , UNK
     Route: 048
     Dates: start: 20010101
  2. BENEFIBER W/ WHEAT DEXTRIN [Suspect]
     Dosage: 2 DF, QD
     Route: 048
     Dates: start: 20010101, end: 20110801

REACTIONS (6)
  - COLOSTOMY [None]
  - NECROTISING FASCIITIS [None]
  - ABDOMINAL DISTENSION [None]
  - ABDOMINAL PAIN UPPER [None]
  - SURGERY [None]
  - OFF LABEL USE [None]
